FAERS Safety Report 24918822 (Version 1)
Quarter: 2025Q1

REPORT INFORMATION
  Report Type: Spontaneous
  Country: US (occurrence: US)
  Receive Date: 20250204
  Receipt Date: 20250204
  Transmission Date: 20250409
  Serious: Yes (Other)
  Sender: MERCK
  Company Number: US-009507513-2502USA000263

PATIENT
  Sex: Male

DRUGS (1)
  1. WINREVAIR [Suspect]
     Active Substance: SOTATERCEPT-CSRK
     Indication: Pulmonary arterial hypertension
     Route: 058

REACTIONS (8)
  - Atrial fibrillation [Unknown]
  - Pulmonary pain [Unknown]
  - Haemoptysis [Unknown]
  - Headache [Unknown]
  - Dry mouth [Unknown]
  - Wheezing [Unknown]
  - Discharge [Unknown]
  - Respiratory tract congestion [Unknown]
